FAERS Safety Report 6055173-4 (Version None)
Quarter: 2009Q1

REPORT INFORMATION
  Report Type: 
  Country: None (occurrence: None)
  Receive Date: 20090122
  Receipt Date: 20090108
  Transmission Date: 20090719
  Serious: Yes (Death)
  Sender: FDA-Public Use
  Company Number: 039926

PATIENT
  Age: 23 Year
  Sex: Female

DRUGS (1)
  1. VERAPAMIL [Suspect]

REACTIONS (1)
  - DRUG TOXICITY [None]
